FAERS Safety Report 12882212 (Version 1)
Quarter: 2016Q4

REPORT INFORMATION
  Report Type: Report from Study
  Country: US (occurrence: US)
  Receive Date: 20161025
  Receipt Date: 20161025
  Transmission Date: 20170207
  Serious: Yes (Hospitalization)
  Sender: FDA-Public Use
  Company Number: US-009507513-1610USA011176

PATIENT
  Age: 61 Year
  Sex: Male
  Weight: 69 kg

DRUGS (11)
  1. PROVENTIL [Concomitant]
     Active Substance: ALBUTEROL
     Dosage: 10 MG, EVERY 6 HOURS, AS NEEDED
     Route: 048
  2. BECLOMETHASONE DIPROPIONATE [Concomitant]
     Active Substance: BECLOMETHASONE DIPROPIONATE
  3. CALCIUM CARBONATE. [Concomitant]
     Active Substance: CALCIUM CARBONATE
  4. LEVOTHYROXINE SODIUM. [Concomitant]
     Active Substance: LEVOTHYROXINE SODIUM
  5. ZOFRAN [Concomitant]
     Active Substance: ONDANSETRON HYDROCHLORIDE
  6. PEMBROLIZUMAB. [Suspect]
     Active Substance: PEMBROLIZUMAB
     Indication: NEOPLASM MALIGNANT
     Dosage: 145 MG (ALSO REPORTED AS 145.4 MG), Q3W
     Route: 042
     Dates: start: 20160524, end: 20160524
  7. PEMBROLIZUMAB. [Suspect]
     Active Substance: PEMBROLIZUMAB
     Dosage: 145 MG (ALSO REPORTED AS 145.4 MG), Q3W
     Route: 042
     Dates: start: 20160617, end: 20160617
  8. IBUPROFEN. [Concomitant]
     Active Substance: IBUPROFEN
  9. COMPAZINE [Concomitant]
     Active Substance: PROCHLORPERAZINE MALEATE
  10. ZOLPIDEM TARTRATE. [Concomitant]
     Active Substance: ZOLPIDEM TARTRATE
  11. PANTOPRAZOLE [Concomitant]
     Active Substance: PANTOPRAZOLE SODIUM

REACTIONS (9)
  - Blood urea increased [Recovered/Resolved]
  - Chills [Unknown]
  - Decreased appetite [Unknown]
  - Abnormal faeces [Unknown]
  - Fatigue [Unknown]
  - Blood creatinine increased [Recovered/Resolved]
  - Hyperhidrosis [Unknown]
  - Cough [Recovering/Resolving]
  - Nausea [Unknown]

NARRATIVE: CASE EVENT DATE: 2016
